FAERS Safety Report 25384160 (Version 2)
Quarter: 2025Q3

REPORT INFORMATION
  Report Type: Spontaneous
  Country: EU (occurrence: EU)
  Receive Date: 20250602
  Receipt Date: 20250709
  Transmission Date: 20251021
  Serious: Yes (Death, Other)
  Sender: ASTELLAS
  Company Number: EU-ASTELLAS-2025-AER-028905

PATIENT
  Age: 32 Year
  Sex: Male

DRUGS (1)
  1. PROGRAF [Suspect]
     Active Substance: TACROLIMUS
     Indication: Product used for unknown indication
     Route: 065

REACTIONS (7)
  - Anastomotic haemorrhage [Fatal]
  - Nervous system disorder [Not Recovered/Not Resolved]
  - Immunosuppressant drug level increased [Unknown]
  - Epilepsy [Unknown]
  - Speech disorder [Unknown]
  - Stupor [Unknown]
  - Toxicity to various agents [Unknown]
